FAERS Safety Report 19726210 (Version 1)
Quarter: 2021Q3

REPORT INFORMATION
  Report Type: Spontaneous
  Country: US (occurrence: US)
  Receive Date: 20210819
  Receipt Date: 20210819
  Transmission Date: 20211014
  Serious: No
  Sender: FDA-Public Use
  Company Number: None

PATIENT
  Age: 35 Year
  Sex: Female
  Weight: 95.3 kg

DRUGS (2)
  1. IMDEVIMAB 120MG/ML [Suspect]
     Active Substance: IMDEVIMAB
  2. CASIRIVIMAB 120MG/ML [Suspect]
     Active Substance: CASIRIVIMAB
     Indication: COVID-19
     Route: 042
     Dates: start: 20210731

REACTIONS (5)
  - Erythema [None]
  - Feeling hot [None]
  - Musculoskeletal discomfort [None]
  - Flushing [None]
  - Pain [None]

NARRATIVE: CASE EVENT DATE: 20210731
